FAERS Safety Report 15866495 (Version 2)
Quarter: 2019Q1

REPORT INFORMATION
  Report Type: Spontaneous
  Country: US (occurrence: US)
  Receive Date: 20190125
  Receipt Date: 20190201
  Transmission Date: 20190417
  Serious: No
  Sender: FDA-Public Use
  Company Number: US-PFIZER INC-2017336968

PATIENT
  Age: 16 Year
  Sex: Female

DRUGS (2)
  1. GENOTROPIN MQ [Suspect]
     Active Substance: SOMATROPIN
     Dosage: 0.2 MG, UNK
     Dates: start: 201701
  2. GENOTROPIN MQ [Suspect]
     Active Substance: SOMATROPIN
     Dosage: 0.4 MG, DAILY
     Route: 058
     Dates: start: 20170218

REACTIONS (12)
  - Blood creatinine decreased [Unknown]
  - Blood sodium increased [Unknown]
  - Blood alkaline phosphatase increased [Unknown]
  - Blood cholesterol increased [Unknown]
  - Migraine [Recovered/Resolved]
  - Insulin-like growth factor increased [Unknown]
  - Blood albumin increased [Unknown]
  - Product dose omission [Unknown]
  - Blood chloride increased [Unknown]
  - Protein total increased [Unknown]
  - Alanine aminotransferase increased [Unknown]
  - Low density lipoprotein increased [Unknown]

NARRATIVE: CASE EVENT DATE: 20170524
